FAERS Safety Report 9717866 (Version 1)
Quarter: 2013Q4

REPORT INFORMATION
  Report Type: Spontaneous
  Country: US (occurrence: None)
  Receive Date: 20131125
  Receipt Date: 20131125
  Transmission Date: 20140711
  Serious: Yes (Death)
  Sender: FDA-Public Use
  Company Number: UTC-040784

PATIENT
  Age: 80 Year
  Sex: Female
  Weight: 48.6 kg

DRUGS (2)
  1. REMODULIN [Suspect]
     Indication: PULMONARY ARTERIAL HYPERTENSION
     Dosage: 100.8 UG/KG  (0.07 UG/KG, 1 IN 1 MIN),  SUBCUTANEOUS
     Route: 058
     Dates: start: 20130227
  2. TRACLEER (BOSENTAN) [Concomitant]

REACTIONS (1)
  - Death [None]
